FAERS Safety Report 14247348 (Version 1)
Quarter: 2017Q4

REPORT INFORMATION
  Report Type: Spontaneous
  Country: JP (occurrence: JP)
  Receive Date: 20171204
  Receipt Date: 20171204
  Transmission Date: 20180321
  Serious: Yes (Hospitalization, Other)
  Sender: FDA-Public Use
  Company Number: JP-BRACCO-2017JP05448

PATIENT
  Age: 67 Year
  Sex: Female

DRUGS (18)
  1. MILNACIPRAN [Concomitant]
     Active Substance: MILNACIPRAN
  2. FLUNITRAZEPAM [Concomitant]
     Active Substance: FLUNITRAZEPAM
  3. PROHANCE [Suspect]
     Active Substance: GADOTERIDOL
     Indication: DIAGNOSTIC PROCEDURE
     Dosage: 13 ML, SINGLE
     Route: 042
     Dates: start: 20171124, end: 20171124
  4. TULOBUTEROL [Concomitant]
     Active Substance: TULOBUTEROL
  5. SULPIRIDE [Concomitant]
     Active Substance: SULPIRIDE
  6. PITAVASTATIN. [Concomitant]
     Active Substance: PITAVASTATIN CALCIUM
  7. COLONEL [Concomitant]
     Active Substance: CALCIUM POLYCARBOPHIL
  8. PRANLUKAST [Concomitant]
     Active Substance: PRANLUKAST
  9. ARTANE [Concomitant]
     Active Substance: TRIHEXYPHENIDYL HYDROCHLORIDE
  10. TIAPRIDE [Concomitant]
     Active Substance: TIAPRIDE
  11. ALPRAZOLAM. [Concomitant]
     Active Substance: ALPRAZOLAM
  12. QUETIAPINE. [Concomitant]
     Active Substance: QUETIAPINE
  13. TASMOLIN                           /00079501/ [Concomitant]
     Active Substance: BIPERIDEN
  14. MAGMITT [Concomitant]
     Active Substance: MAGNESIUM OXIDE
  15. SODIUM VALPROATE [Concomitant]
     Active Substance: VALPROATE SODIUM
  16. BROTIZOLAM [Concomitant]
     Active Substance: BROTIZOLAM
  17. FAMOTIDINE. [Concomitant]
     Active Substance: FAMOTIDINE
  18. QVAR [Concomitant]
     Active Substance: BECLOMETHASONE DIPROPIONATE

REACTIONS (4)
  - Feeling abnormal [Recovering/Resolving]
  - Loss of consciousness [Recovering/Resolving]
  - Nausea [Recovered/Resolved]
  - Seizure [Recovering/Resolving]

NARRATIVE: CASE EVENT DATE: 20171124
